FAERS Safety Report 20604942 (Version 1)
Quarter: 2022Q1

REPORT INFORMATION
  Report Type: Spontaneous
  Country: FR (occurrence: FR)
  Receive Date: 20220317
  Receipt Date: 20220317
  Transmission Date: 20220424
  Serious: Yes (Hospitalization, Congenital Anomaly, Other)
  Sender: FDA-Public Use
  Company Number: FR-ABBVIE-22K-056-4319742-00

PATIENT
  Sex: Male

DRUGS (2)
  1. VALPROATE SODIUM [Suspect]
     Active Substance: VALPROATE SODIUM
     Indication: Maternal exposure timing unspecified
     Route: 064
  2. ORTENAL [Suspect]
     Active Substance: AMPHETAMINE SULFATE\PHENOBARBITAL
     Indication: Maternal exposure timing unspecified
     Route: 064

REACTIONS (19)
  - Disseminated intravascular coagulation [Unknown]
  - Dysmorphism [Unknown]
  - Foetal distress syndrome [Unknown]
  - Dysgraphia [Unknown]
  - Speech disorder developmental [Unknown]
  - Hepatomegaly [Unknown]
  - Hypotonia [Unknown]
  - Inguinal hernia [Unknown]
  - Deafness neurosensory [Unknown]
  - Speech disorder developmental [Unknown]
  - Hypermobility syndrome [Unknown]
  - Foot deformity [Unknown]
  - Ear, nose and throat disorder [Unknown]
  - Language disorder [Unknown]
  - Asthenopia [Unknown]
  - Headache [Unknown]
  - Thrombocytopenia [Unknown]
  - Dysphonia [Unknown]
  - Foetal exposure during pregnancy [Unknown]

NARRATIVE: CASE EVENT DATE: 19930101
